FAERS Safety Report 10188304 (Version 3)
Quarter: 2014Q2

REPORT INFORMATION
  Report Type: Report from Study
  Country: DE (occurrence: DE)
  Receive Date: 20140522
  Receipt Date: 20140627
  Transmission Date: 20141212
  Serious: Yes (Death, Hospitalization)
  Sender: FDA-Public Use
  Company Number: DE-BEH-2014042642

PATIENT
  Age: 81 Year
  Sex: Female
  Weight: 78 kg

DRUGS (14)
  1. PRIVIGEN [Suspect]
     Dosage: INFUSION RATE: MIN. 2 ML/MIN, MAX. 3 ML/MIN
     Dates: start: 20130923, end: 20130923
  2. PRIVIGEN [Suspect]
     Indication: BLOOD IMMUNOGLOBULIN G DECREASED
     Dosage: INFUSION RATE: MIN. 2 ML/MIN, MAX. 3 ML/MIN
     Dates: start: 20140117, end: 20140117
  3. PRIVIGEN [Suspect]
     Dosage: INFUSION RATE: MIN. 2 ML/MIN, MAX. 3 ML/MIN
     Dates: start: 20140214, end: 20140214
  4. PRIVIGEN [Suspect]
     Dosage: INFUSION RATE: MIN. 2 ML/MIN, MAX. 3 ML/MIN
     Dates: start: 20140314, end: 20140314
  5. MARCUMAR [Concomitant]
     Dosage: ACCORDING TO INR
  6. TORASEMID 10 MG [Concomitant]
  7. SPIRONOLACTON 25 MG [Concomitant]
  8. RAMIPRIL 2.5 MG [Concomitant]
  9. BISOPROLOL 2.5 MG [Concomitant]
  10. LEVOTHYROXIN 200 ?G [Concomitant]
  11. PANTOPRAZOL 40 [Concomitant]
  12. ALLOPURINOL 300 [Concomitant]
  13. SIMVASTATIN 20 [Concomitant]
  14. CALCIVIT D [Concomitant]

REACTIONS (3)
  - Cerebrovascular accident [Fatal]
  - Fall [Recovered/Resolved]
  - Pelvic fracture [Unknown]
